FAERS Safety Report 6469591-3 (Version None)
Quarter: 2009Q4

REPORT INFORMATION
  Report Type: 
  Country: None (occurrence: None)
  Receive Date: 20091119
  Receipt Date: 20091015
  Transmission Date: 20100525
  Serious: No
  Sender: FDA-Public Use
  Company Number: WAES 0910USA01994

PATIENT
  Age: 79 Year
  Sex: Male
  Weight: 66.6788 kg

DRUGS (1)
  1. JANUVIA [Suspect]
     Dosage: 100MG/DAILY/PO/50 MG/DAILY/PO
     Route: 048

REACTIONS (1)
  - LIPASE INCREASED [None]
